FAERS Safety Report 13673562 (Version 1)
Quarter: 2017Q2

REPORT INFORMATION
  Report Type: Spontaneous
  Country: US (occurrence: US)
  Receive Date: 20170621
  Receipt Date: 20170621
  Transmission Date: 20170830
  Serious: Yes (Other)
  Sender: FDA-Public Use
  Company Number: US-LPDUSPRD-20170782

PATIENT
  Age: 76 Year

DRUGS (1)
  1. SODIUM BICARBONATE INJECTION, USP (0639-25) [Suspect]
     Active Substance: SODIUM BICARBONATE
     Dosage: 356.6 MEQ
     Route: 065

REACTIONS (2)
  - Hypernatraemia [Unknown]
  - Delirium [Unknown]
